FAERS Safety Report 5477412-0 (Version None)
Quarter: 2007Q4

REPORT INFORMATION
  Report Type: 
  Country: None (occurrence: None)
  Receive Date: 20071004
  Receipt Date: 20070922
  Transmission Date: 20080405
  Serious: Yes (Other)
  Sender: FDA-Public Use
  Company Number: US-PFIZER INC-2007080632

PATIENT
  Sex: Female
  Weight: 68.181 kg

DRUGS (4)
  1. CHANTIX [Suspect]
     Indication: SMOKING CESSATION THERAPY
     Route: 048
  2. XANAX [Concomitant]
  3. ALL OTHER THERAPEUTIC PRODUCTS [Concomitant]
     Indication: HORMONE REPLACEMENT THERAPY
  4. ANTIHYPERTENSIVES [Concomitant]

REACTIONS (10)
  - AGEUSIA [None]
  - CONSTIPATION [None]
  - DIZZINESS [None]
  - DYSGEUSIA [None]
  - EMOTIONAL DISORDER [None]
  - HOT FLUSH [None]
  - HUNGER [None]
  - IRRITABILITY [None]
  - NAUSEA [None]
  - WEIGHT DECREASED [None]
